FAERS Safety Report 22028873 (Version 1)
Quarter: 2023Q1

REPORT INFORMATION
  Report Type: Spontaneous
  Country: US (occurrence: None)
  Receive Date: 20230220
  Receipt Date: 20230220
  Transmission Date: 20230418
  Serious: No
  Sender: FDA-Public Use
  Company Number: None

PATIENT
  Sex: Female

DRUGS (1)
  1. STELARA [Suspect]
     Active Substance: USTEKINUMAB
     Indication: Inflammatory bowel disease
     Dosage: 90MG  EVERY 28 DAYS SUBQ?
     Route: 058
     Dates: start: 202101

REACTIONS (3)
  - Drug ineffective [None]
  - Arthralgia [None]
  - Pain [None]
